FAERS Safety Report 10382494 (Version 1)
Quarter: 2014Q3

REPORT INFORMATION
  Report Type: Spontaneous
  Country: US (occurrence: US)
  Receive Date: 20140813
  Receipt Date: 20140813
  Transmission Date: 20150326
  Serious: Yes (Other)
  Sender: FDA-Public Use
  Company Number: US-JNJFOC-20140805466

PATIENT
  Age: 7 Decade
  Sex: Male

DRUGS (3)
  1. ALL OTHER MEDICATIONS [Concomitant]
     Active Substance: UNSPECIFIED INGREDIENT
  2. CELEBREX [Concomitant]
     Active Substance: CELECOXIB
  3. INVOKANA [Suspect]
     Active Substance: CANAGLIFLOZIN
     Indication: TYPE 2 DIABETES MELLITUS
     Route: 048

REACTIONS (5)
  - Coeliac disease [Unknown]
  - Blood urea decreased [Unknown]
  - Blood creatine decreased [Unknown]
  - Renal failure [Unknown]
  - Gastrointestinal disorder [Unknown]
